FAERS Safety Report 4914178-4 (Version None)
Quarter: 2006Q1

REPORT INFORMATION
  Report Type: 
  Country: None (occurrence: None)
  Receive Date: 20060213
  Receipt Date: 20060201
  Transmission Date: 20060701
  Serious: Yes (Death)
  Sender: FDA-Public Use
  Company Number: 2005JP002149

PATIENT
  Age: 67 Year
  Sex: Female

DRUGS (12)
  1. PROGRAF [Suspect]
     Indication: RHEUMATOID ARTHRITIS
     Dosage: 3 MG, UID/QD, ORAL
     Route: 048
     Dates: start: 20050927, end: 20051103
  2. PREDNISOLONE [Concomitant]
  3. AMARYL [Concomitant]
  4. ACTOS /CAN/ (PIOGLITAZONE HYDROCHLORIDE) [Concomitant]
  5. MUCOSOLVAN L (AMBROXOL HYDROCHLORIDE) [Concomitant]
  6. MAGNESIUM OXIDE (MAGNESIUM OXIDE) [Concomitant]
  7. LAC B (LACTOBACILLUS BIFIDUS, LYOPHILIZED) [Concomitant]
  8. GASTER OD [Concomitant]
  9. DEPAS (ETIZOLAM) [Concomitant]
  10. HALCION [Concomitant]
  11. EVISTA [Concomitant]
  12. BASEN (VOGLIBOSE) [Concomitant]

REACTIONS (5)
  - CEREBRAL INFARCTION [None]
  - HYPERCOAGULATION [None]
  - MALAISE [None]
  - PNEUMOCYSTIS JIROVECI PNEUMONIA [None]
  - RESPIRATORY FAILURE [None]
